FAERS Safety Report 6668257-4 (Version None)
Quarter: 2010Q2

REPORT INFORMATION
  Report Type: 
  Country: None (occurrence: None)
  Receive Date: 20100406
  Receipt Date: 20100324
  Transmission Date: 20101027
  Serious: Yes (Hospitalization, Disabling)
  Sender: FDA-Public Use
  Company Number: NL-GENZYME-POMP-1000895

PATIENT
  Sex: Male
  Weight: 16 kg

DRUGS (7)
  1. MYOZYME [Suspect]
     Indication: GLYCOGEN STORAGE DISEASE TYPE II
     Dosage: 20 MG/KG, QW
     Route: 042
     Dates: start: 20070330
  2. MYOZYME [Suspect]
     Dosage: 40 MG/KG, Q2W
     Route: 042
  3. COTRIM [Concomitant]
     Indication: RESPIRATORY TRACT INFECTION
     Dosage: 240 MG, QD
     Route: 065
  4. FLUTICASONE PROPIONATE [Concomitant]
     Indication: RESPIRATORY TRACT INFECTION
     Dosage: 125 MCG, BID
     Route: 065
  5. VENTOLIN [Concomitant]
     Indication: RESPIRATORY TRACT INFECTION
     Dosage: 200 MCG, UNK
     Route: 065
  6. NEXIUM [Concomitant]
     Indication: GASTROOESOPHAGEAL REFLUX DISEASE
     Dosage: 10 MG, BID
     Route: 065
  7. ERYTHROMYCIN [Concomitant]
     Indication: GASTROOESOPHAGEAL REFLUX DISEASE
     Dosage: 75 MG, TID
     Route: 065

REACTIONS (3)
  - MUSCULAR WEAKNESS [None]
  - RESPIRATORY FAILURE [None]
  - RESPIRATORY TRACT INFECTION VIRAL [None]
